FAERS Safety Report 8479179-0 (Version None)
Quarter: 2012Q2

REPORT INFORMATION
  Report Type: 
  Country: None (occurrence: None)
  Receive Date: 20120629
  Receipt Date: 20120621
  Transmission Date: 20120825
  Serious: Yes (Hospitalization)
  Sender: FDA-Public Use
  Company Number: JP-JNJFOC-20120302716

PATIENT
  Age: 62 Year
  Sex: Male
  Weight: 60 kg

DRUGS (15)
  1. PREDNISOLONE SODIUM SUCCINATE INJ [Suspect]
     Indication: COLITIS ULCERATIVE
     Route: 048
     Dates: start: 20120209
  2. PREDNISOLONE SODIUM SUCCINATE INJ [Suspect]
     Route: 048
     Dates: start: 20120131, end: 20120201
  3. SOLU-MEDROL [Concomitant]
     Route: 042
     Dates: start: 20120116, end: 20120116
  4. PENTASA [Concomitant]
     Indication: COLITIS ULCERATIVE
     Route: 048
  5. LANSOPRAZOLE [Concomitant]
     Route: 048
  6. REMICADE [Suspect]
     Route: 042
     Dates: start: 20111212
  7. REMICADE [Suspect]
     Route: 042
     Dates: start: 20120201
  8. CEFAZOLIN SODIUM [Concomitant]
     Route: 048
  9. SOLU-MEDROL [Concomitant]
     Indication: COLITIS ULCERATIVE
     Route: 042
     Dates: start: 20111207, end: 20111207
  10. SOLU-MEDROL [Concomitant]
     Route: 042
     Dates: start: 20120123, end: 20120123
  11. FERROUS CITRATE [Concomitant]
     Route: 048
  12. PREDNISOLONE SODIUM SUCCINATE INJ [Concomitant]
     Route: 042
     Dates: start: 20120126, end: 20120130
  13. REMICADE [Suspect]
     Indication: COLITIS ULCERATIVE
     Route: 042
     Dates: start: 20120104
  14. PREDNISOLONE SODIUM SUCCINATE INJ [Suspect]
     Route: 048
     Dates: start: 20120202, end: 20120208
  15. LOPERAMIDE HYDROCHLORIDE [Concomitant]
     Route: 048

REACTIONS (2)
  - RESPIRATORY FAILURE [None]
  - PNEUMOCYSTIS JIROVECI PNEUMONIA [None]
